FAERS Safety Report 6327043-5 (Version None)
Quarter: 2009Q3

REPORT INFORMATION
  Report Type: 
  Country: None (occurrence: None)
  Receive Date: 20090825
  Receipt Date: 20090820
  Transmission Date: 20100115
  Serious: Yes (Other)
  Sender: FDA-Public Use
  Company Number: US-BAYER-200913205BCC

PATIENT
  Age: 73 Year
  Sex: Male

DRUGS (10)
  1. ALEVE [Suspect]
     Indication: DRUG USE FOR UNKNOWN INDICATION
     Route: 065
     Dates: end: 20090101
  2. REBIF [Suspect]
     Indication: MULTIPLE SCLEROSIS
     Route: 058
     Dates: start: 20061219
  3. VYTORIN [Concomitant]
     Indication: BLOOD CHOLESTEROL ABNORMAL
     Dosage: TOTAL DAILY DOSE: 1 DF
     Route: 048
  4. AVALIDE [Concomitant]
     Indication: BLOOD PRESSURE ABNORMAL
     Dosage: TOTAL DAILY DOSE: 1 DF
     Route: 048
  5. GABAPENTIN [Concomitant]
     Indication: MULTIPLE SCLEROSIS
     Dosage: AS USED: 300/100 MG
     Route: 065
  6. LEXAPRO [Concomitant]
     Route: 065
     Dates: start: 20090301
  7. MULTI-VITAMIN [Concomitant]
     Dosage: TOTAL DAILY DOSE: 1 DF
     Route: 065
  8. ASPIRIN [Concomitant]
     Route: 065
  9. LECITHIN [Concomitant]
     Route: 065
  10. TYLENOL (CAPLET) [Concomitant]
     Route: 065
     Dates: start: 20090101

REACTIONS (1)
  - RENAL FAILURE CHRONIC [None]
